FAERS Safety Report 4885738-4 (Version None)
Quarter: 2006Q1

REPORT INFORMATION
  Report Type: 
  Country: None (occurrence: None)
  Receive Date: 20060117
  Receipt Date: 20060105
  Transmission Date: 20060701
  Serious: Yes (Other)
  Sender: FDA-Public Use
  Company Number: 2006005476

PATIENT
  Age: 10 Year
  Sex: 0

DRUGS (2)
  1. SOLU-CORTEF [Suspect]
     Indication: ASTHMA
     Dosage: 100 MG (100 MG 1 IN D)
     Dates: start: 20040506, end: 20040506
  2. AMINOPHYLLIN [Concomitant]

REACTIONS (1)
  - ANAPHYLACTIC SHOCK [None]
